FAERS Safety Report 19599684 (Version 1)
Quarter: 2021Q3

REPORT INFORMATION
  Report Type: Spontaneous
  Country: TR (occurrence: TR)
  Receive Date: 20210722
  Receipt Date: 20210722
  Transmission Date: 20211014
  Serious: Yes (Death, Other)
  Sender: FDA-Public Use
  Company Number: TR-PFIZER INC-2021866238

PATIENT
  Age: 62 Year
  Sex: Male
  Weight: 70 kg

DRUGS (2)
  1. MUSCOBLOC [Suspect]
     Active Substance: ROCURONIUM BROMIDE
     Indication: ENDOTRACHEAL INTUBATION
     Dosage: 50 MG
     Route: 042
     Dates: start: 20210703, end: 20210703
  2. KETALAR [Suspect]
     Active Substance: KETAMINE HYDROCHLORIDE
     Indication: ENDOTRACHEAL INTUBATION
     Dosage: 150 MG
     Route: 042
     Dates: start: 20210703, end: 20210703

REACTIONS (2)
  - Cardiac arrest [Fatal]
  - Acidosis [Unknown]

NARRATIVE: CASE EVENT DATE: 20210703
